FAERS Safety Report 19890086 (Version 1)
Quarter: 2021Q3

REPORT INFORMATION
  Report Type: Report from Study
  Country: DE (occurrence: DE)
  Receive Date: 20210927
  Receipt Date: 20210927
  Transmission Date: 20211014
  Serious: Yes (Hospitalization)
  Sender: FDA-Public Use
  Company Number: DE-PFIZER INC-2021370437

PATIENT
  Sex: Female

DRUGS (13)
  1. METHOTREXATE SODIUM. [Suspect]
     Active Substance: METHOTREXATE SODIUM
     Dosage: 12.5 MG
     Route: 065
  2. ERELZI [Suspect]
     Active Substance: ETANERCEPT-SZZS
     Dosage: 50 MG
     Route: 065
     Dates: start: 202011, end: 202012
  3. PRIORIN [Concomitant]
     Dosage: UNK, AS NEEDED
     Route: 065
  4. FOLIC ACID. [Concomitant]
     Active Substance: FOLIC ACID
     Dosage: 5 MG
     Route: 065
     Dates: start: 200111
  5. DECORTIN H [Concomitant]
     Active Substance: PREDNISOLONE
     Dosage: 5 MG, AS NEEDED
     Route: 065
     Dates: start: 200102
  6. RAMILICH [Concomitant]
     Active Substance: RAMIPRIL
     Dosage: 2.5 MG
     Route: 065
  7. LEVODOPA [Concomitant]
     Active Substance: LEVODOPA
     Route: 065
  8. METHOTREXATE SODIUM. [Suspect]
     Active Substance: METHOTREXATE SODIUM
     Dosage: 15 MG, WEEKLY
     Route: 065
  9. NO SUBJECT DRUG [Suspect]
     Active Substance: UNSPECIFIED INGREDIENT
     Dosage: NO DOSE GIVEN
  10. ERELZI [Suspect]
     Active Substance: ETANERCEPT-SZZS
     Dosage: UNK
     Route: 065
     Dates: start: 20201222
  11. HYRIMOZ [Suspect]
     Active Substance: ADALIMUMAB-ADAZ
     Dosage: 40 MG, EVERY 2 WEEKS
     Route: 065
     Dates: start: 20201223, end: 20210202
  12. DEKRISTOL [Concomitant]
     Active Substance: CHOLECALCIFEROL
     Dosage: 20000 IU
     Route: 065
  13. THYRONAJOD [Concomitant]
     Active Substance: LEVOTHYROXINE SODIUM\POTASSIUM IODIDE
     Dosage: 100 UG
     Route: 065

REACTIONS (3)
  - Reactive gastropathy [Recovered/Resolved]
  - Intestinal haemorrhage [Recovered/Resolved]
  - Diarrhoea [Recovered/Resolved]

NARRATIVE: CASE EVENT DATE: 202101
